FAERS Safety Report 24259740 (Version 1)
Quarter: 2024Q3

REPORT INFORMATION
  Report Type: Spontaneous
  Country: US (occurrence: None)
  Receive Date: 20240828
  Receipt Date: 20240828
  Transmission Date: 20241017
  Serious: Yes (Other)
  Sender: ASTRAZENECA
  Company Number: 2024A187618

PATIENT

DRUGS (1)
  1. BREZTRI [Suspect]
     Active Substance: BUDESONIDE\FORMOTEROL\GLYCOPYRROLATE
     Route: 055

REACTIONS (6)
  - Pelvic fracture [Unknown]
  - Fall [Unknown]
  - Pain [Unknown]
  - Device delivery system issue [Unknown]
  - Device use issue [Unknown]
  - Contusion [Unknown]

NARRATIVE: CASE EVENT DATE: 20240813
